APPROVED DRUG PRODUCT: MINOCYCLINE HYDROCHLORIDE
Active Ingredient: MINOCYCLINE HYDROCHLORIDE
Strength: EQ 50MG BASE
Dosage Form/Route: CAPSULE;ORAL
Application: A063181 | Product #001 | TE Code: AB
Applicant: WATSON LABORATORIES INC AN INDIRECT WHOLLY OWNED SUB OF TEVA PHARMACEUTICALS USA INC
Approved: Dec 30, 1991 | RLD: No | RS: No | Type: RX